FAERS Safety Report 13692641 (Version 1)
Quarter: 2017Q2

REPORT INFORMATION
  Report Type: Spontaneous
  Country: US (occurrence: US)
  Receive Date: 20170627
  Receipt Date: 20170627
  Transmission Date: 20170830
  Serious: No
  Sender: FDA-Public Use
  Company Number: US-PFIZER INC-2017277478

PATIENT
  Sex: Female
  Weight: 68.4 kg

DRUGS (3)
  1. LYRICA [Interacting]
     Active Substance: PREGABALIN
     Dosage: THREE 225MG (675MG) CAPSULES DAILY AT NIGHT
     Route: 048
     Dates: start: 201612, end: 201612
  2. LYRICA [Interacting]
     Active Substance: PREGABALIN
     Dosage: TWO 225MG (450MG) CAPSULES DAILY AT NIGHT
     Route: 048
  3. LYRICA [Suspect]
     Active Substance: PREGABALIN
     Indication: FIBROMYALGIA
     Dosage: TWO 225MG (450MG) CAPSULES, DAILY AT NIGHT
     Route: 048
     Dates: start: 2007

REACTIONS (7)
  - Drug dose omission [Recovered/Resolved]
  - Nausea [Recovered/Resolved]
  - Withdrawal syndrome [Recovered/Resolved]
  - Headache [Recovered/Resolved]
  - Drug interaction [Unknown]
  - Feeling abnormal [Recovered/Resolved]
  - Prescribed overdose [Unknown]

NARRATIVE: CASE EVENT DATE: 201612
